FAERS Safety Report 9530740 (Version 2)
Quarter: 2013Q3

REPORT INFORMATION
  Report Type: Spontaneous
  Country: US (occurrence: US)
  Receive Date: 20130918
  Receipt Date: 20130927
  Transmission Date: 20140515
  Serious: No
  Sender: FDA-Public Use
  Company Number: US-009507513-1309USA004947

PATIENT
  Age: 52 Year
  Sex: Female

DRUGS (2)
  1. SINGULAIR [Suspect]
     Indication: HYPERSENSITIVITY
     Dosage: 5 MG, BID
     Route: 048
     Dates: start: 2007
  2. SINGULAIR [Suspect]
     Indication: ASTHMA

REACTIONS (6)
  - Chest discomfort [Recovered/Resolved]
  - Drug dose omission [Unknown]
  - Poor quality drug administered [Unknown]
  - Product quality issue [Unknown]
  - Dyspnoea [Unknown]
  - Drug dose omission [Unknown]
